FAERS Safety Report 9036246 (Version 1)
Quarter: 2013Q1

REPORT INFORMATION
  Report Type: Report from Study
  Country: US (occurrence: US)
  Receive Date: 20130129
  Receipt Date: 20130129
  Transmission Date: 20140127
  Serious: Yes (Hospitalization, Other)
  Sender: FDA-Public Use
  Company Number: US-ABBOTT-12P-163-0924387-00

PATIENT
  Age: 29 Year
  Sex: Female

DRUGS (7)
  1. HUMIRA 40 MG/0.8 ML PEN [Suspect]
     Indication: PSORIASIS
     Dosage: 80MG LOADING DOSE
     Dates: start: 2007
  2. HUMIRA 40 MG/0.8 ML PEN [Suspect]
     Dosage: 40MG ON DAY 8
  3. HUMIRA 40 MG/0.8 ML PEN [Suspect]
  4. HUMIRA 40 MG/0.8 ML PEN [Suspect]
     Dosage: 80MG LOADING DOSE
  5. HUMIRA 40 MG/0.8 ML PEN [Suspect]
     Dosage: 40MG ON DAY 8
  6. HUMIRA 40 MG/0.8 ML PEN [Suspect]
  7. UNKNOWN MEDICATION [Suspect]
     Indication: HEART RATE IRREGULAR
     Dates: start: 2010

REACTIONS (10)
  - Pneumonia [Unknown]
  - Headache [Unknown]
  - Intervertebral disc disorder [Unknown]
  - Ligament rupture [Unknown]
  - Heart rate irregular [Unknown]
  - Nausea [Unknown]
  - Malaise [Unknown]
  - Palpitations [Unknown]
  - Cholecystectomy [Unknown]
  - Sunburn [Unknown]
